FAERS Safety Report 17827942 (Version 1)
Quarter: 2020Q2

REPORT INFORMATION
  Report Type: Spontaneous
  Country: BE (occurrence: BE)
  Receive Date: 20200527
  Receipt Date: 20200527
  Transmission Date: 20200714
  Serious: Yes (Hospitalization, Other)
  Sender: FDA-Public Use
  Company Number: BE-TEVA-2020-BE-1239580

PATIENT
  Age: 59 Year
  Sex: Male

DRUGS (4)
  1. LEDERTREXATE [Suspect]
     Active Substance: METHOTREXATE
     Indication: SYSTEMIC SCLERODERMA
     Route: 058
  2. TRIMETHOPRIM-SULFAMETHOXAZOLE [Suspect]
     Active Substance: SULFAMETHOXAZOLE\TRIMETHOPRIM
     Indication: PNEUMOCYSTIS JIROVECII PNEUMONIA
     Dosage: TRIMETHOPRIM 18 MG/KG/24 H - SULFAMETHOXAZOLE 90 MG/ KG/24 H
     Route: 048
  3. METHYLPREDNISOLONE. [Suspect]
     Active Substance: METHYLPREDNISOLONE
     Indication: SYSTEMIC SCLERODERMA
     Dosage: 6 MILLIGRAM DAILY; 32 MG ORALLY ON DAYS 1-5, 32 MG ONCE DAILY ON DAYS 6-10 AND 12 MG ONCE DAILY ON D
     Route: 048
  4. RITUXIMAB. [Suspect]
     Active Substance: RITUXIMAB
     Indication: SYSTEMIC SCLERODERMA
     Dosage: 2X1G AT 14 DAYS INTERVAL; FIRST COURSE ADMINISTERED FIVE MONTHS PRIOR TO PRESENTATION
     Route: 042

REACTIONS (7)
  - Hypercalcaemia [Recovered/Resolved]
  - Pneumocystis jirovecii pneumonia [Recovering/Resolving]
  - Neutropenia [Recovering/Resolving]
  - Granuloma [Recovering/Resolving]
  - Respiratory failure [Recovering/Resolving]
  - Systemic scleroderma [Recovering/Resolving]
  - Acute kidney injury [Recovered/Resolved]
